FAERS Safety Report 10266878 (Version 1)
Quarter: 2014Q2

REPORT INFORMATION
  Report Type: Spontaneous
  Country: US (occurrence: None)
  Receive Date: 20140625
  Receipt Date: 20140625
  Transmission Date: 20141212
  Serious: Yes (Hospitalization, Disabling, Other)
  Sender: FDA-Public Use
  Company Number: None

PATIENT
  Age: 71 Year
  Sex: Male
  Weight: 81.65 kg

DRUGS (8)
  1. SUPER OMEGA 3 EPA 300 / DHA 200 FORMULA FISH OIL [Suspect]
     Indication: HYPERTRIGLYCERIDAEMIA
     Route: 048
     Dates: end: 20131223
  2. ISOSORBIDE DINITRATE [Concomitant]
  3. MECLIZINE HCL [Concomitant]
  4. AQQRENOK [Concomitant]
  5. RANITIDINE [Concomitant]
  6. AMLODIPINE BESYLATE [Concomitant]
  7. BISACODYL [Concomitant]
  8. ONE DAILY MENS MULTIVATIMINS  + CRANBERRY [Concomitant]

REACTIONS (1)
  - Cerebrovascular accident [None]
